FAERS Safety Report 20178021 (Version 2)
Quarter: 2022Q4

REPORT INFORMATION
  Report Type: Spontaneous
  Country: FR (occurrence: FR)
  Receive Date: 20211213
  Receipt Date: 20221019
  Transmission Date: 20230113
  Serious: Yes (Hospitalization, Other)
  Sender: FDA-Public Use
  Company Number: None

PATIENT
  Age: 38 Year
  Sex: Female

DRUGS (6)
  1. METHYLPREDNISOLONE SODIUM SUCCINATE [Suspect]
     Active Substance: METHYLPREDNISOLONE SODIUM SUCCINATE
     Indication: Prophylaxis of nausea and vomiting
     Dosage: 80 MG
  2. VENLAFAXINE HYDROCHLORIDE [Suspect]
     Active Substance: VENLAFAXINE HYDROCHLORIDE
     Indication: Ophthalmic migraine
     Dosage: 1 DF, 1X/DAY
     Route: 048
     Dates: start: 202104
  3. EMEND [Suspect]
     Active Substance: APREPITANT
     Indication: Prophylaxis of nausea and vomiting
     Dosage: 125 MG
     Route: 048
     Dates: start: 20211025
  4. ONDANSETRON HYDROCHLORIDE [Suspect]
     Active Substance: ONDANSETRON HYDROCHLORIDE
     Indication: Prophylaxis of nausea and vomiting
     Dosage: 8 MG
     Route: 048
     Dates: start: 20211025
  5. EPIRUBICIN [Suspect]
     Active Substance: EPIRUBICIN
     Indication: Invasive ductal breast carcinoma
     Dosage: 45 MG/M2
     Route: 041
     Dates: start: 20211025
  6. CYCLOPHOSPHAMIDE [Suspect]
     Active Substance: CYCLOPHOSPHAMIDE
     Indication: Invasive ductal breast carcinoma
     Dosage: 600 MG/M2
     Route: 041
     Dates: start: 20211025

REACTIONS (2)
  - Hyponatraemia [Recovered/Resolved]
  - Tonic convulsion [Recovered/Resolved]

NARRATIVE: CASE EVENT DATE: 20211108
